FAERS Safety Report 7666412-8 (Version None)
Quarter: 2011Q3

REPORT INFORMATION
  Report Type: 
  Country: None (occurrence: None)
  Receive Date: 20110806
  Receipt Date: 20110531
  Transmission Date: 20111222
  Serious: No
  Sender: FDA-Public Use
  Company Number: US-ABBOTT-11P-163-0729335-00

PATIENT
  Sex: Female
  Weight: 90.8 kg

DRUGS (2)
  1. NIASPAN [Suspect]
     Indication: PRODUCT USED FOR UNKNOWN INDICATION
     Dates: start: 20110201
  2. LIVALO [Concomitant]
     Indication: PRODUCT USED FOR UNKNOWN INDICATION

REACTIONS (6)
  - MIDDLE INSOMNIA [None]
  - BURNING SENSATION [None]
  - FLUSHING [None]
  - ERYTHEMA [None]
  - URTICARIA [None]
  - PARAESTHESIA [None]
